FAERS Safety Report 7523900-2 (Version None)
Quarter: 2011Q2

REPORT INFORMATION
  Report Type: 
  Country: None (occurrence: None)
  Receive Date: 20110603
  Receipt Date: 20110526
  Transmission Date: 20111010
  Serious: Yes (Hospitalization)
  Sender: FDA-Public Use
  Company Number: TR-MERCK-1105TUR00008

PATIENT
  Age: 58 Year
  Sex: Female

DRUGS (2)
  1. TEICOPLANIN [Concomitant]
     Indication: MEDIASTINITIS
     Route: 065
  2. PRIMAXIN [Suspect]
     Indication: MEDIASTINITIS
     Route: 041

REACTIONS (1)
  - DRUG INEFFECTIVE [None]
